FAERS Safety Report 22021475 (Version 1)
Quarter: 2023Q1

REPORT INFORMATION
  Report Type: Report from Study
  Country: CO (occurrence: CO)
  Receive Date: 20230222
  Receipt Date: 20230222
  Transmission Date: 20230418
  Serious: Yes (Hospitalization, Other)
  Sender: FDA-Public Use
  Company Number: CO-BAYER-2023A003799

PATIENT
  Age: 68 Year
  Sex: Female

DRUGS (2)
  1. NEXAVAR [Suspect]
     Active Substance: SORAFENIB
     Indication: Thyroid cancer metastatic
     Dosage: 200 MG, BID
     Route: 048
     Dates: start: 20221212
  2. NEXAVAR [Suspect]
     Active Substance: SORAFENIB
     Indication: Thyroid cancer metastatic
     Dosage: 400 UNK
     Dates: end: 20230203

REACTIONS (15)
  - Angina unstable [Recovered/Resolved]
  - Vomiting [Unknown]
  - Nausea [Unknown]
  - Pain in extremity [Unknown]
  - Pain in extremity [Unknown]
  - Skin irritation [Unknown]
  - Skin irritation [Unknown]
  - Skin irritation [Unknown]
  - Throat irritation [Unknown]
  - Vulvovaginal discomfort [Unknown]
  - Asthenia [Unknown]
  - Paranasal sinus discomfort [Unknown]
  - Depressed mood [Not Recovered/Not Resolved]
  - Off label use [None]
  - Vomiting [Not Recovered/Not Resolved]

NARRATIVE: CASE EVENT DATE: 20221212
